FAERS Safety Report 7070210-6 (Version None)
Quarter: 2010Q4

REPORT INFORMATION
  Report Type: 
  Country: None (occurrence: None)
  Receive Date: 20101028
  Receipt Date: 20100928
  Transmission Date: 20110411
  Serious: No
  Sender: FDA-Public Use
  Company Number: US-WYE-H17844410

PATIENT
  Age: 41 Year
  Sex: Female
  Weight: 62.65 kg

DRUGS (4)
  1. ADVIL [Suspect]
     Indication: HEADACHE
     Dosage: 3 LIQUI-GELS AS NEEDED
     Route: 048
  2. ASCORBIC ACID [Concomitant]
  3. ONE-A-DAY [Concomitant]
  4. LEVOTHYROXINE [Concomitant]

REACTIONS (2)
  - DRUG INEFFECTIVE [None]
  - INCORRECT DOSE ADMINISTERED [None]
